FAERS Safety Report 24175687 (Version 2)
Quarter: 2024Q3

REPORT INFORMATION
  Report Type: Spontaneous
  Country: MY (occurrence: MY)
  Receive Date: 20240805
  Receipt Date: 20240809
  Transmission Date: 20241017
  Serious: Yes (Death, Other)
  Sender: ANI
  Company Number: MY-ANIPHARMA-2024-MY-000014

PATIENT
  Sex: Female

DRUGS (1)
  1. FLUVOXAMINE MALEATE [Suspect]
     Active Substance: FLUVOXAMINE MALEATE
     Indication: Major depression
     Dosage: (1 IN 1 DAY)
     Route: 048

REACTIONS (5)
  - Jaundice [Unknown]
  - Drug-induced liver injury [Unknown]
  - Pyrexia [Unknown]
  - Hepatic lesion [Unknown]
  - Death [Fatal]

NARRATIVE: CASE EVENT DATE: 20240701
